FAERS Safety Report 10060449 (Version 2)
Quarter: 2014Q2

REPORT INFORMATION
  Report Type: Spontaneous
  Country: DE (occurrence: DE)
  Receive Date: 20140404
  Receipt Date: 20140505
  Transmission Date: 20141212
  Serious: Yes (Other)
  Sender: FDA-Public Use
  Company Number: PHHY2014DE040185

PATIENT
  Sex: Female
  Weight: 60 kg

DRUGS (8)
  1. ULTIBRO BREEZHALER [Suspect]
     Indication: CHRONIC OBSTRUCTIVE PULMONARY DISEASE
     Dosage: 1 DF, QD
     Route: 055
  2. PREDNISOLON [Concomitant]
     Route: 048
  3. MICARDIS PLUS [Concomitant]
     Route: 048
  4. METOPROLOL [Concomitant]
     Route: 048
  5. EZETROL [Concomitant]
     Route: 048
  6. ASS [Concomitant]
     Route: 048
  7. ARCOXIA [Concomitant]
     Route: 048
  8. SPIRIVA [Concomitant]

REACTIONS (4)
  - Intraocular pressure increased [Unknown]
  - Lacrimation increased [Unknown]
  - Eye pain [Unknown]
  - Rhinorrhoea [Unknown]
